FAERS Safety Report 25463709 (Version 3)
Quarter: 2025Q4

REPORT INFORMATION
  Report Type: Spontaneous
  Country: CA (occurrence: CA)
  Receive Date: 20250621
  Receipt Date: 20251118
  Transmission Date: 20260117
  Serious: Yes (Hospitalization, Other)
  Sender: TEVA
  Company Number: CA-TEVA-VS-3343889

PATIENT
  Age: 65 Year
  Sex: Female

DRUGS (39)
  1. ESCITALOPRAM [Suspect]
     Active Substance: ESCITALOPRAM OXALATE
     Indication: Depression
     Route: 065
  2. LEVOMEPROMAZINE [Suspect]
     Active Substance: LEVOMEPROMAZINE
     Indication: Depression
     Dosage: DOSE FORM: NOT SPECIFIED
     Route: 065
  3. BREXPIPRAZOLE [Suspect]
     Active Substance: BREXPIPRAZOLE
     Indication: Insomnia
     Route: 065
  4. BREXPIPRAZOLE [Suspect]
     Active Substance: BREXPIPRAZOLE
     Indication: Insomnia
     Route: 065
  5. FLUOXETINE [Suspect]
     Active Substance: FLUOXETINE HYDROCHLORIDE
     Indication: Depression
     Dosage: DOSE FORM: NOT SPECIFIED
     Route: 065
  6. CANNABIS SATIVA FLOWERING TOP [Suspect]
     Active Substance: CANNABIS SATIVA FLOWERING TOP
     Indication: Insomnia
     Route: 065
  7. LAMOTRIGINE [Suspect]
     Active Substance: LAMOTRIGINE
     Indication: Depression
     Route: 065
  8. LURASIDONE HYDROCHLORIDE [Suspect]
     Active Substance: LURASIDONE HYDROCHLORIDE
     Indication: Depression
     Dosage: DOSE FORM: NOT SPECIFIED
     Route: 065
  9. LURASIDONE HYDROCHLORIDE [Suspect]
     Active Substance: LURASIDONE HYDROCHLORIDE
     Indication: Depression
     Route: 065
  10. LORAZEPAM [Suspect]
     Active Substance: LORAZEPAM
     Indication: Depression
     Dosage: DOSE FORM: NOT SPECIFIED
     Route: 065
  11. MIRTAZAPINE [Suspect]
     Active Substance: MIRTAZAPINE
     Indication: Depression
     Route: 065
  12. MIRTAZAPINE [Suspect]
     Active Substance: MIRTAZAPINE
     Indication: Depression
     Route: 065
  13. MIRTAZAPINE [Suspect]
     Active Substance: MIRTAZAPINE
     Indication: Depression
     Route: 065
  14. OLANZAPINE [Suspect]
     Active Substance: OLANZAPINE
     Indication: Depression
     Dosage: DOSE FORM: NOT SPECIFIED
     Route: 065
  15. VORTIOXETINE [Suspect]
     Active Substance: VORTIOXETINE
     Indication: Depression
     Route: 065
  16. ZOLPIDEM [Suspect]
     Active Substance: ZOLPIDEM TARTRATE
     Indication: Depression
     Route: 065
  17. PAROXETINE HYDROCHLORIDE [Suspect]
     Active Substance: PAROXETINE HYDROCHLORIDE
     Indication: Depression
     Route: 065
  18. PRAMIPEXOLE [Suspect]
     Active Substance: PRAMIPEXOLE
     Indication: Depression
     Route: 065
  19. PRAMIPEXOLE [Suspect]
     Active Substance: PRAMIPEXOLE
     Indication: Depression
     Dosage: DOSE FORM: NOT SPECIFIED
     Route: 065
  20. QUETIAPINE [Suspect]
     Active Substance: QUETIAPINE
     Indication: Depression
     Route: 065
  21. QUETIAPINE [Suspect]
     Active Substance: QUETIAPINE
     Indication: Depression
     Route: 048
  22. RISPERIDONE [Suspect]
     Active Substance: RISPERIDONE
     Indication: Depression
     Dosage: DOSE FORM: NOT SPECIFIED
     Route: 065
  23. ZOPICLONE [Suspect]
     Active Substance: ZOPICLONE
     Indication: Depression
     Route: 065
  24. VENLAFAXINE [Suspect]
     Active Substance: VENLAFAXINE HYDROCHLORIDE
     Indication: Depression
     Dosage: VENLAFAXINE XR, DOSE FORM: CAPSULE, EXTENDED RELEASE
     Route: 065
  25. PANTOPRAZOLE [Suspect]
     Active Substance: PANTOPRAZOLE
     Indication: Gastrooesophageal reflux disease
     Dosage: ANHYDROUS PANTOPRAZOLE SODIUM
     Route: 065
  26. PANTOPRAZOLE [Suspect]
     Active Substance: PANTOPRAZOLE
     Indication: Gastrooesophageal reflux disease
     Dosage: DOSE FORM: NOT SPECIFIED
     Route: 065
  27. APIXABAN [Suspect]
     Active Substance: APIXABAN
     Indication: Depression
     Route: 065
  28. APIXABAN [Suspect]
     Active Substance: APIXABAN
     Indication: Depression
     Route: 065
  29. FLUVOXAMINE [Suspect]
     Active Substance: FLUVOXAMINE
     Indication: Depression
     Route: 065
  30. BUPROPION [Suspect]
     Active Substance: BUPROPION
     Indication: Depression
     Route: 065
  31. BUPROPION [Suspect]
     Active Substance: BUPROPION
     Indication: Depression
     Route: 065
  32. BUPROPION [Suspect]
     Active Substance: BUPROPION
     Indication: Depression
     Route: 065
  33. CLOMIPRAMINE [Suspect]
     Active Substance: CLOMIPRAMINE
     Indication: Depression
     Route: 065
  34. GABAPENTIN [Suspect]
     Active Substance: GABAPENTIN
     Indication: Depression
     Dosage: DOSE FORM: NOT SPECIFIED
     Route: 065
  35. LEMBOREXANT [Suspect]
     Active Substance: LEMBOREXANT
     Indication: Insomnia
     Route: 065
  36. LEMBOREXANT [Suspect]
     Active Substance: LEMBOREXANT
     Indication: Insomnia
     Route: 048
  37. DAYVIGO [Suspect]
     Active Substance: LEMBOREXANT
     Indication: Depression
     Route: 048
  38. LEVOMEPROMAZINE [Suspect]
     Active Substance: LEVOMEPROMAZINE
     Indication: Depression
     Dosage: LEVOMEPROMAZINE MALEATE
     Route: 065
  39. LEVOMEPROMAZINE [Suspect]
     Active Substance: LEVOMEPROMAZINE
     Indication: Depression
     Dosage: DOSE FORM: NOT SPECIFIED
     Route: 065

REACTIONS (8)
  - Condition aggravated [Recovered/Resolved]
  - Suicidal ideation [Recovered/Resolved]
  - Adverse drug reaction [Recovered/Resolved]
  - Drug ineffective [Recovered/Resolved]
  - Off label use [Recovered/Resolved]
  - Suicide attempt [Recovered/Resolved]
  - Therapy non-responder [Recovered/Resolved]
  - Underdose [Recovered/Resolved]
